FAERS Safety Report 14352257 (Version 3)
Quarter: 2019Q1

REPORT INFORMATION
  Report Type: Spontaneous
  Country: US (occurrence: US)
  Receive Date: 20180104
  Receipt Date: 20190130
  Transmission Date: 20190417
  Serious: Yes (Other)
  Sender: FDA-Public Use
  Company Number: US-DSJP-DSU-2017-145633

PATIENT

DRUGS (2)
  1. BENICAR [Suspect]
     Active Substance: OLMESARTAN MEDOXOMIL
     Dosage: 40 MG, QD
     Route: 048
     Dates: end: 20161205
  2. BENICAR [Suspect]
     Active Substance: OLMESARTAN MEDOXOMIL
     Indication: HYPERTENSION
     Dosage: 20 MG, QD
     Route: 048
     Dates: start: 20131127, end: 20161205

REACTIONS (9)
  - Gastrooesophageal reflux disease [Unknown]
  - Haemorrhoids [Unknown]
  - Constipation [Not Recovered/Not Resolved]
  - Helicobacter gastritis [Recovering/Resolving]
  - Large intestine polyp [Recovered/Resolved]
  - Gallbladder polyp [Unknown]
  - Gastroenteritis [Unknown]
  - Peptic ulcer [Unknown]
  - Weight decreased [Unknown]

NARRATIVE: CASE EVENT DATE: 20131127
